FAERS Safety Report 23261054 (Version 1)
Quarter: 2023Q4

REPORT INFORMATION
  Report Type: Spontaneous
  Country: BE (occurrence: None)
  Receive Date: 20231205
  Receipt Date: 20231205
  Transmission Date: 20240110
  Serious: Yes (Other)
  Sender: FDA-Public Use
  Company Number: BE-ROCHE-3465150

PATIENT
  Age: 18 Year

DRUGS (1)
  1. OCREVUS [Suspect]
     Active Substance: OCRELIZUMAB
     Indication: Product used for unknown indication
     Dosage: FIRST INFUSION
     Route: 065

REACTIONS (3)
  - Infusion related reaction [Unknown]
  - Rash [Unknown]
  - Hypoaesthesia oral [Unknown]
